FAERS Safety Report 7396848-4 (Version None)
Quarter: 2011Q2

REPORT INFORMATION
  Report Type: 
  Country: None (occurrence: None)
  Receive Date: 20110406
  Receipt Date: 20110331
  Transmission Date: 20111010
  Serious: Yes (Death, Hospitalization, Disabling)
  Sender: FDA-Public Use
  Company Number: FR-TEVA-267946ISR

PATIENT
  Sex: Female
  Weight: 66.3 kg

DRUGS (8)
  1. FLUINDIONE [Concomitant]
     Indication: THROMBOSIS PROPHYLAXIS
  2. LENALIDOMIDE [Suspect]
     Route: 048
     Dates: start: 20110104, end: 20110112
  3. FLUINDIONE [Concomitant]
     Indication: ATRIAL FIBRILLATION
     Route: 048
     Dates: start: 20090101
  4. FLUINDIONE [Concomitant]
     Indication: ARRHYTHMIA
  5. CIPRALAN [Concomitant]
     Indication: ATRIAL FIBRILLATION
  6. DEXAMETHASONE [Suspect]
     Indication: MULTIPLE MYELOMA
     Dates: start: 20101207
  7. LENALIDOMIDE [Suspect]
     Indication: MULTIPLE MYELOMA
     Route: 048
     Dates: start: 20101207
  8. DEXAMETHASONE [Suspect]
     Dates: start: 20110104, end: 20110112

REACTIONS (4)
  - SEPSIS [None]
  - EUPHORIC MOOD [None]
  - DIABETES MELLITUS [None]
  - REPETITIVE SPEECH [None]
